FAERS Safety Report 9094011 (Version 1)
Quarter: 2013Q1

REPORT INFORMATION
  Report Type: Spontaneous
  Country: RO (occurrence: RO)
  Receive Date: 20130201
  Receipt Date: 20130201
  Transmission Date: 20140127
  Serious: Yes (Hospitalization, Other)
  Sender: FDA-Public Use
  Company Number: RO-ROCHE-1185695

PATIENT
  Age: 57 Year
  Sex: Male

DRUGS (2)
  1. MABTHERA [Suspect]
     Indication: CHRONIC LYMPHOCYTIC LEUKAEMIA
     Route: 042
     Dates: start: 20120901, end: 20130124
  2. MABTHERA [Suspect]
     Indication: RICHTER^S SYNDROME

REACTIONS (5)
  - Chills [Recovered/Resolved]
  - Cyanosis [Recovered/Resolved]
  - Pyrexia [Recovered/Resolved]
  - Hypertension [Recovered/Resolved]
  - Sinus tachycardia [Recovered/Resolved]
